FAERS Safety Report 16965016 (Version 1)
Quarter: 2019Q4

REPORT INFORMATION
  Report Type: Spontaneous
  Country: CH (occurrence: CH)
  Receive Date: 20191028
  Receipt Date: 20191028
  Transmission Date: 20200122
  Serious: Yes (Hospitalization, Other)
  Sender: FDA-Public Use
  Company Number: CH-SCIEGEN PHARMACEUTICALS INC-2019SCILIT00285

PATIENT
  Age: 77 Year
  Sex: Male

DRUGS (7)
  1. OMEPRAZOLE. [Suspect]
     Active Substance: OMEPRAZOLE
  2. AMITRIPTYLINE [Suspect]
     Active Substance: AMITRIPTYLINE
  3. VENLAFAXINE [Suspect]
     Active Substance: VENLAFAXINE HYDROCHLORIDE
  4. GABAPENTIN TABLETS [Suspect]
     Active Substance: GABAPENTIN
  5. TILIDINE/NALOXONE [Suspect]
     Active Substance: NALOXONE HYDROCHLORIDE\TILIDINE HYDROCHLORIDE
  6. SLEEPING PILLS [Concomitant]
     Active Substance: UNSPECIFIED INGREDIENT
  7. LORAZEPAM. [Suspect]
     Active Substance: LORAZEPAM

REACTIONS (6)
  - Delirium [Recovered/Resolved]
  - Arthralgia [Recovered/Resolved]
  - Fall [Recovered/Resolved]
  - Pain [Recovered/Resolved]
  - Loss of personal independence in daily activities [Recovered/Resolved]
  - Gait inability [Recovered/Resolved]
